FAERS Safety Report 6071726-1 (Version None)
Quarter: 2009Q1

REPORT INFORMATION
  Report Type: 
  Country: None (occurrence: None)
  Receive Date: 20090209
  Receipt Date: 20090209
  Transmission Date: 20090719
  Serious: Yes (Hospitalization)
  Sender: FDA-Public Use
  Company Number: None

PATIENT
  Sex: Male

DRUGS (2)
  1. CETUXIMAB [Suspect]
     Indication: LIP NEOPLASM MALIGNANT STAGE UNSPECIFIED
     Dosage: 250 MG/M2, IV
     Dates: end: 20090121
  2. CETUXIMAB [Suspect]
     Indication: METASTATIC NEOPLASM
     Dosage: 250 MG/M2, IV
     Dates: end: 20090121

REACTIONS (7)
  - DISEASE PROGRESSION [None]
  - LYMPHADENOPATHY [None]
  - MUSCULAR WEAKNESS [None]
  - MUSCULOSKELETAL PAIN [None]
  - NECROSIS [None]
  - NERVE COMPRESSION [None]
  - NERVOUS SYSTEM DISORDER [None]
